FAERS Safety Report 7558178-7 (Version None)
Quarter: 2011Q2

REPORT INFORMATION
  Report Type: 
  Country: None (occurrence: None)
  Receive Date: 20110620
  Receipt Date: 20110609
  Transmission Date: 20111010
  Serious: Yes (Other)
  Sender: FDA-Public Use
  Company Number: US-SANOFI-AVENTIS-2011SA038417

PATIENT
  Age: 71 Year
  Sex: Female

DRUGS (4)
  1. SOLOSTAR [Suspect]
  2. LANTUS [Suspect]
     Dosage: INCREASED HER NUMBER OF UNITSGRADUALLY UP TO 70 UNITS DOSE:70 UNIT(S)
     Route: 058
  3. NOVOLOG [Concomitant]
  4. LANTUS [Suspect]
     Dosage: DOSE:30 UNIT(S)
     Route: 058

REACTIONS (4)
  - CONDITION AGGRAVATED [None]
  - CATARACT [None]
  - MACULAR DEGENERATION [None]
  - BLOOD GLUCOSE ABNORMAL [None]
